FAERS Safety Report 10257136 (Version 1)
Quarter: 2014Q2

REPORT INFORMATION
  Report Type: Spontaneous
  Country: US (occurrence: US)
  Receive Date: 20140625
  Receipt Date: 20140625
  Transmission Date: 20141212
  Serious: Yes (Other)
  Sender: FDA-Public Use
  Company Number: US-DRREDDYS-USA/USA/14/0041273

PATIENT
  Age: 38 Year
  Sex: Male

DRUGS (3)
  1. QUETIAPINE FUMARATE TABLETS [Suspect]
     Indication: PRODUCT USED FOR UNKNOWN INDICATION
     Dosage: UP TO 1,000 MG
     Route: 065
  2. BUPRENORPHINE/NALOXONE [Interacting]
     Indication: DRUG DEPENDENCE
     Route: 060
  3. GABAPENTIN [Interacting]
     Indication: PRODUCT USED FOR UNKNOWN INDICATION
     Dosage: UP TO 2,400 MG
     Route: 065

REACTIONS (2)
  - Drug abuse [Unknown]
  - Potentiating drug interaction [Unknown]
